FAERS Safety Report 4883823-4 (Version None)
Quarter: 2006Q1

REPORT INFORMATION
  Report Type: 
  Country: None (occurrence: None)
  Receive Date: 20060113
  Receipt Date: 20051228
  Transmission Date: 20060701
  Serious: Yes (Death, Hospitalization)
  Sender: FDA-Public Use
  Company Number: USA0506101690

PATIENT
  Age: 54 Year
  Sex: Male
  Weight: 80 kg

DRUGS (11)
  1. XIGRIS [Suspect]
     Indication: SEPSIS
     Dosage: 24 UG/KG/HR, UNKNOWN, INTRAVENOUS
     Route: 042
     Dates: start: 20050623, end: 20050626
  2. LEVOPHED [Concomitant]
  3. DILANTIN [Concomitant]
  4. CEFTRIAXONE [Concomitant]
  5. DIFLUCAN (FLUCONAZOLE) [Concomitant]
  6. NAFCILLIN (NAFCILLIN) [Concomitant]
  7. FENTANYL CITRATE [Concomitant]
  8. PEPCID [Concomitant]
  9. ATROVENT [Concomitant]
  10. XOPENEX [Concomitant]
  11. DIPRIVAN [Concomitant]

REACTIONS (6)
  - CARDIAC ARREST [None]
  - CEREBRAL HAEMORRHAGE [None]
  - CONVULSION [None]
  - INTERNATIONAL NORMALISED RATIO INCREASED [None]
  - PYOTHORAX [None]
  - SEPTIC EMBOLUS [None]
